FAERS Safety Report 13610583 (Version 7)
Quarter: 2018Q1

REPORT INFORMATION
  Report Type: Spontaneous
  Country: US (occurrence: US)
  Receive Date: 20170605
  Receipt Date: 20180205
  Transmission Date: 20180508
  Serious: Yes (Death, Congenital Anomaly, Other)
  Sender: FDA-Public Use
  Company Number: PHEH2017US016509

PATIENT
  Sex: Female

DRUGS (2)
  1. ZOFRAN [Suspect]
     Active Substance: ONDANSETRON HYDROCHLORIDE
     Indication: FOETAL EXPOSURE DURING PREGNANCY
     Route: 064
  2. ZOFRAN [Suspect]
     Active Substance: ONDANSETRON HYDROCHLORIDE
     Indication: FOETAL EXPOSURE DURING PREGNANCY
     Route: 064

REACTIONS (39)
  - Coarctation of the aorta [Unknown]
  - Hypoplastic left heart syndrome [Unknown]
  - Atrioventricular septal defect [Unknown]
  - Right ventricular enlargement [Unknown]
  - Atelectasis neonatal [Recovering/Resolving]
  - Pneumothorax [Unknown]
  - Aorta hypoplasia [Unknown]
  - Aortic valve atresia [Unknown]
  - Dehydration [Unknown]
  - Dysuria [Unknown]
  - Death [Fatal]
  - Tricuspid valve incompetence [Unknown]
  - Mood swings [Unknown]
  - Pyrexia [Unknown]
  - Learning disorder [Unknown]
  - Nasopharyngitis [Unknown]
  - Pulmonary valve incompetence [Unknown]
  - Cardiomegaly [Unknown]
  - Attention deficit/hyperactivity disorder [Unknown]
  - Cyanosis [Unknown]
  - Tonsillitis [Unknown]
  - Pruritus [Unknown]
  - Headache [Unknown]
  - Upper respiratory tract infection [Unknown]
  - Foetal exposure during pregnancy [Unknown]
  - Ventricular hypoplasia [Unknown]
  - Abdominal distension [Unknown]
  - Gastroenteritis [Unknown]
  - Viral infection [Unknown]
  - Right ventricular hypertrophy [Unknown]
  - Acarodermatitis [Unknown]
  - Constipation [Unknown]
  - Pharyngitis [Unknown]
  - Heart disease congenital [Unknown]
  - Aortic valve incompetence [Unknown]
  - Laevocardia [Unknown]
  - Bundle branch block right [Unknown]
  - Pulmonary oedema [Recovering/Resolving]
  - Chest pain [Unknown]
